FAERS Safety Report 11596380 (Version 1)
Quarter: 2015Q4

REPORT INFORMATION
  Report Type: Spontaneous
  Country: CA (occurrence: CA)
  Receive Date: 20151006
  Receipt Date: 20151006
  Transmission Date: 20160304
  Serious: Yes (Hospitalization, Other)
  Sender: FDA-Public Use
  Company Number: CA-TEVA-597877ACC

PATIENT
  Age: 86 Year
  Sex: Female
  Weight: 71 kg

DRUGS (6)
  1. BLUEBERRY. [Suspect]
     Active Substance: BLUEBERRY
     Indication: MACULAR DEGENERATION
     Dosage: 3 DOSAGE FORMS DAILY;
     Route: 048
  2. ATIVAN [Concomitant]
     Active Substance: LORAZEPAM
  3. VALSARTAN. [Concomitant]
     Active Substance: VALSARTAN
  4. ZOPICLONE [Concomitant]
     Active Substance: ZOPICLONE
  5. ATORVASTATIN CALCIUM. [Concomitant]
     Active Substance: ATORVASTATIN CALCIUM
  6. ATORVASTATIN CALCIUM. [Suspect]
     Active Substance: ATORVASTATIN CALCIUM
     Indication: CEREBROVASCULAR ACCIDENT PROPHYLAXIS
     Dosage: 40 MILLIGRAM DAILY;
     Route: 048

REACTIONS (4)
  - Hepatitis [Recovered/Resolved]
  - Hepatotoxicity [Recovered/Resolved]
  - Anaemia [Recovered/Resolved]
  - Diverticular perforation [Recovered/Resolved]
